FAERS Safety Report 16446238 (Version 2)
Quarter: 2019Q2

REPORT INFORMATION
  Report Type: Spontaneous
  Country: IT (occurrence: IT)
  Receive Date: 20190618
  Receipt Date: 20190620
  Transmission Date: 20190711
  Serious: Yes (Other)
  Sender: FDA-Public Use
  Company Number: IT-009507513-1906ITA005268

PATIENT
  Age: 20 Year
  Sex: Female

DRUGS (2)
  1. NUTRIDRINK [Concomitant]
     Active Substance: CARBOHYDRATES\FATTY ACIDS\MINERALS\PROTEIN\VITAMINS
     Dosage: FOOD SUPPLEMENT
  2. NUVARING [Suspect]
     Active Substance: ETHINYL ESTRADIOL\ETONOGESTREL
     Indication: CONTRACEPTION
     Dosage: 1 DOSAGE FORM

REACTIONS (5)
  - Diarrhoea [Unknown]
  - Unintended pregnancy [Unknown]
  - Vaginal haemorrhage [Unknown]
  - Pregnancy on contraceptive [Unknown]
  - Device breakage [Recovered/Resolved]

NARRATIVE: CASE EVENT DATE: 2019
